FAERS Safety Report 26086565 (Version 1)
Quarter: 2025Q4

REPORT INFORMATION
  Report Type: Spontaneous
  Country: EU (occurrence: EU)
  Receive Date: 20251125
  Receipt Date: 20251125
  Transmission Date: 20260117
  Serious: Yes (Other)
  Sender: UCB
  Company Number: None

PATIENT
  Age: 73 Year

DRUGS (10)
  1. KEPPRA [Suspect]
     Active Substance: LEVETIRACETAM
     Indication: Epilepsy
     Dosage: 2 DOSAGE FORM, ONCE DAILY (QD)
  2. ALDACTONE [Concomitant]
     Active Substance: SPIRONOLACTONE
     Indication: Product used for unknown indication
     Dosage: UNK
  3. Amlodipine besilate EG 5 MG [Concomitant]
     Indication: Product used for unknown indication
     Dosage: UNK
  4. ASPIRIN [Concomitant]
     Active Substance: ASPIRIN
     Indication: Product used for unknown indication
     Dosage: UNK
  5. Dovato 50 MG/300 MG [Concomitant]
     Indication: Product used for unknown indication
     Dosage: UNK
  6. L-Thyroxine Christiaens 75 ?G [Concomitant]
     Indication: Product used for unknown indication
     Dosage: UNK
  7. LYRICA [Concomitant]
     Active Substance: PREGABALIN
     Indication: Product used for unknown indication
     Dosage: UNK
  8. ACETAMINOPHEN [Concomitant]
     Active Substance: ACETAMINOPHEN
     Indication: Product used for unknown indication
     Dosage: UNK
  9. ROCALTROL 0,50 MICROGRAMMES CAPSULE MOLLE [Concomitant]
     Indication: Product used for unknown indication
     Dosage: UNK
  10. Rosuvastatine EG 10 mg comprim?s pellicul?s [Concomitant]
     Indication: Product used for unknown indication
     Dosage: UNK

REACTIONS (3)
  - Aplastic anaemia [Not Recovered/Not Resolved]
  - Anaemia macrocytic [Not Recovered/Not Resolved]
  - Blood test abnormal [Not Recovered/Not Resolved]
